FAERS Safety Report 10570124 (Version 1)
Quarter: 2014Q4

REPORT INFORMATION
  Report Type: Spontaneous
  Country: US (occurrence: None)
  Receive Date: 20141106
  Receipt Date: 20141106
  Transmission Date: 20150529
  Serious: Yes (Disabling)
  Sender: FDA-Public Use
  Company Number: None

PATIENT
  Age: 67 Year
  Sex: Female
  Weight: 52.16 kg

DRUGS (1)
  1. CIPRO [Suspect]
     Active Substance: CIPROFLOXACIN HYDROCHLORIDE
     Indication: URINARY TRACT INFECTION
     Dosage: BID FOR 7 DAYS I THINK TWICE DAILY TAKEN BY MOUTH
     Route: 048
     Dates: start: 20130627, end: 20130629

REACTIONS (2)
  - Joint swelling [None]
  - Tendonitis [None]

NARRATIVE: CASE EVENT DATE: 20130629
